FAERS Safety Report 14860415 (Version 1)
Quarter: 2018Q2

REPORT INFORMATION
  Report Type: Spontaneous
  Country: IN (occurrence: IN)
  Receive Date: 20180508
  Receipt Date: 20180508
  Transmission Date: 20180711
  Serious: Yes (Other)
  Sender: FDA-Public Use
  Company Number: IN-SA-2018SA123798

PATIENT
  Age: 25 Year
  Sex: Female
  Weight: 39 kg

DRUGS (2)
  1. ENOXAPARIN SODIUM. [Suspect]
     Active Substance: ENOXAPARIN SODIUM
     Route: 065
  2. TENECTEPLASE [Concomitant]
     Active Substance: TENECTEPLASE
     Route: 065

REACTIONS (4)
  - Palpitations [Unknown]
  - Maternal exposure during pregnancy [Unknown]
  - Feeling abnormal [Unknown]
  - Dyspnoea [Unknown]
